FAERS Safety Report 8336510-4 (Version None)
Quarter: 2012Q2

REPORT INFORMATION
  Report Type: 
  Country: None (occurrence: None)
  Receive Date: 20120504
  Receipt Date: 20120424
  Transmission Date: 20120825
  Serious: Yes (Other)
  Sender: FDA-Public Use
  Company Number: BR-BRISTOL-MYERS SQUIBB COMPANY-16106718

PATIENT
  Age: 59 Year
  Sex: Female

DRUGS (1)
  1. HYDREA [Suspect]
     Indication: POLYCYTHAEMIA VERA
     Dosage: 3CAPS,500MG IN 5WK DAYS,2CAPS 500MG ON OTHER 2DAYS OF WK,1 WK,3D,1L00261;31OCT14,FOR ABT 5 OR 6YRS
     Route: 048
     Dates: start: 20060101

REACTIONS (7)
  - LARYNGEAL OEDEMA [None]
  - ERYTHEMA [None]
  - ARRHYTHMIA [None]
  - OEDEMA [None]
  - CAPSULE PHYSICAL ISSUE [None]
  - ANGIOEDEMA [None]
  - URTICARIA CHRONIC [None]
